FAERS Safety Report 10193767 (Version 1)
Quarter: 2014Q2

REPORT INFORMATION
  Report Type: Spontaneous
  Country: US (occurrence: US)
  Receive Date: 20140524
  Receipt Date: 20140524
  Transmission Date: 20141212
  Serious: No
  Sender: FDA-Public Use
  Company Number: US-SANOFI-AVENTIS-2013SA043168

PATIENT
  Age: 72 Year
  Sex: Female

DRUGS (7)
  1. LANTUS SOLOSTAR [Suspect]
     Indication: DIABETES MELLITUS
     Dosage: START DATE-3 MNTHS AGO DOSE:45 UNIT(S)
     Route: 058
     Dates: start: 201301
  2. SOLOSTAR [Suspect]
     Indication: DEVICE THERAPY
     Dates: start: 201301
  3. VALSARTAN [Concomitant]
     Indication: HYPERTENSION
     Dosage: START DATE: 8 YEARS AGO
  4. ATORVASTATIN [Concomitant]
     Indication: BLOOD CHOLESTEROL
     Dosage: START DATE:8 YRS
     Dates: start: 20130425
  5. ATENOLOL [Concomitant]
     Indication: HYPERTENSION
     Dosage: START: 8 YRS
  6. LEVOTHYROXINE [Concomitant]
     Indication: THYROID DISORDER
     Dosage: START: 7 YEARS AGO
  7. ERGOCALCIFEROL [Concomitant]
     Dosage: START DATE: 4 YEARS AGO

REACTIONS (1)
  - Incorrect product storage [Unknown]
